FAERS Safety Report 15411596 (Version 2)
Quarter: 2018Q4

REPORT INFORMATION
  Report Type: Report from Study
  Country: None (occurrence: GB)
  Receive Date: 20180921
  Receipt Date: 20181015
  Transmission Date: 20190204
  Serious: Yes (Other)
  Sender: FDA-Public Use
  Company Number: GB-ABBVIE-18K-167-2490314-00

PATIENT
  Sex: Female

DRUGS (1)
  1. HUMIRA [Suspect]
     Active Substance: ADALIMUMAB
     Indication: CROHN^S DISEASE
     Route: 058
     Dates: start: 2018

REACTIONS (3)
  - Hyperhidrosis [Unknown]
  - Rectal haemorrhage [Not Recovered/Not Resolved]
  - Skin atrophy [Unknown]

NARRATIVE: CASE EVENT DATE: 2018
